FAERS Safety Report 9672497 (Version 1)
Quarter: 2013Q4

REPORT INFORMATION
  Report Type: Spontaneous
  Country: US (occurrence: US)
  Receive Date: 20131106
  Receipt Date: 20131106
  Transmission Date: 20140711
  Serious: No
  Sender: FDA-Public Use
  Company Number: US-TEVA-442676USA

PATIENT
  Age: 68 Year
  Sex: Male
  Weight: 93.07 kg

DRUGS (1)
  1. QVAR [Suspect]
     Indication: CHRONIC OBSTRUCTIVE PULMONARY DISEASE

REACTIONS (1)
  - Dyspnoea [Not Recovered/Not Resolved]
